FAERS Safety Report 13533356 (Version 1)
Quarter: 2017Q2

REPORT INFORMATION
  Report Type: Spontaneous
  Country: JP (occurrence: JP)
  Receive Date: 20170510
  Receipt Date: 20170510
  Transmission Date: 20170830
  Serious: Yes (Hospitalization, Other)
  Sender: FDA-Public Use
  Company Number: JP-PFIZER INC-2017161731

PATIENT
  Age: 90 Year
  Sex: Male

DRUGS (11)
  1. ONBREZ [Suspect]
     Active Substance: INDACATEROL
     Indication: CHRONIC OBSTRUCTIVE PULMONARY DISEASE
     Dosage: 150 UG, 1X/DAY
     Route: 048
     Dates: end: 20170425
  2. AMBROXOL HCL [Concomitant]
     Active Substance: AMBROXOL HYDROCHLORIDE
     Indication: CHRONIC OBSTRUCTIVE PULMONARY DISEASE
     Dosage: 15 MG, 3X/DAY
     Route: 048
     Dates: end: 20170425
  3. CARBOCISTEINE [Concomitant]
     Active Substance: CARBOCYSTEINE
     Indication: CHRONIC OBSTRUCTIVE PULMONARY DISEASE
     Dosage: 250 MG, 3X/DAY
     Route: 048
     Dates: end: 20170425
  4. BROTIZOLAM [Suspect]
     Active Substance: BROTIZOLAM
     Indication: INSOMNIA
     Dosage: 0.25 MG, 1X/DAY
     Route: 048
     Dates: end: 20170425
  5. NAFTOPIDIL [Suspect]
     Active Substance: NAFTOPIDIL
     Indication: BENIGN PROSTATIC HYPERPLASIA
     Dosage: 75 MG, 1X/DAY
     Route: 048
     Dates: end: 20170418
  6. CLARITHROMYCIN. [Suspect]
     Active Substance: CLARITHROMYCIN
     Indication: PROPHYLAXIS
     Dosage: 200 MG, 1X/DAY
     Route: 048
     Dates: end: 20170425
  7. ZALUTIA [Suspect]
     Active Substance: TADALAFIL
     Indication: BENIGN PROSTATIC HYPERPLASIA
     Dosage: 5 MG, 1X/DAY
     Route: 048
     Dates: start: 20161111, end: 20170418
  8. CLARITHROMYCIN. [Suspect]
     Active Substance: CLARITHROMYCIN
     Indication: CHRONIC OBSTRUCTIVE PULMONARY DISEASE
  9. TOVIAZ [Suspect]
     Active Substance: FESOTERODINE FUMARATE
     Indication: HYPERTONIC BLADDER
     Dosage: 4 MG, 1X/DAY
     Route: 048
     Dates: start: 20170404, end: 20170410
  10. TSUKUSHI AM [Concomitant]
     Indication: ABDOMINAL DISCOMFORT
     Dosage: 1.3 G, 3X/DAY
     Route: 048
     Dates: end: 20170425
  11. REBAMIPIDE [Suspect]
     Active Substance: REBAMIPIDE
     Indication: CHRONIC GASTRITIS
     Dosage: 100 MG, 3X/DAY
     Route: 048
     Dates: end: 20170425

REACTIONS (2)
  - Urinary retention [Recovering/Resolving]
  - Gastroenteritis bacterial [Unknown]

NARRATIVE: CASE EVENT DATE: 201704
